FAERS Safety Report 19492574 (Version 1)
Quarter: 2021Q3

REPORT INFORMATION
  Report Type: Spontaneous
  Country: US (occurrence: US)
  Receive Date: 20210705
  Receipt Date: 20210705
  Transmission Date: 20211014
  Serious: Yes (Other)
  Sender: FDA-Public Use
  Company Number: US-PRA-000113

PATIENT
  Age: 74 Year

DRUGS (1)
  1. METHYLPREDNISOLONE. [Suspect]
     Active Substance: METHYLPREDNISOLONE
     Indication: JOINT INJECTION
     Route: 014

REACTIONS (2)
  - Bursitis infective [Recovered/Resolved]
  - Product use in unapproved indication [Unknown]
